FAERS Safety Report 17572352 (Version 1)
Quarter: 2020Q1

REPORT INFORMATION
  Report Type: Spontaneous
  Country: US (occurrence: US)
  Receive Date: 20200323
  Receipt Date: 20200323
  Transmission Date: 20200409
  Serious: No
  Sender: FDA-Public Use
  Company Number: US-ITALFARMACO SPA-2081884

PATIENT
  Age: 57 Year
  Sex: Male

DRUGS (6)
  1. ATORVASTATIN CALCIUM. [Concomitant]
     Active Substance: ATORVASTATIN CALCIUM
  2. TIGLUTIK [Suspect]
     Active Substance: RILUZOLE
     Indication: AMYOTROPHIC LATERAL SCLEROSIS
     Route: 048
     Dates: start: 20191130
  3. GABAPENTIN. [Concomitant]
     Active Substance: GABAPENTIN
  4. LISINOPRIL. [Concomitant]
     Active Substance: LISINOPRIL
  5. BACLOFEN. [Concomitant]
     Active Substance: BACLOFEN
  6. MULTIVITAMIN [Concomitant]
     Active Substance: VITAMINS

REACTIONS (3)
  - Muscular weakness [Not Recovered/Not Resolved]
  - Abdominal pain [Not Recovered/Not Resolved]
  - Musculoskeletal stiffness [Not Recovered/Not Resolved]
